FAERS Safety Report 5699713-3 (Version None)
Quarter: 2008Q2

REPORT INFORMATION
  Report Type: 
  Country: None (occurrence: None)
  Receive Date: 20080410
  Receipt Date: 20080331
  Transmission Date: 20081010
  Serious: Yes (Hospitalization)
  Sender: FDA-Public Use
  Company Number: PHHY2008CA04349

PATIENT
  Age: 67 Year
  Sex: Female

DRUGS (4)
  1. DIOVAN [Suspect]
     Indication: HYPERTENSION
     Dosage: 160 MG, QD
     Route: 048
     Dates: start: 20071001
  2. CRESTOR [Concomitant]
  3. NOVOHYDRAZIDE [Concomitant]
     Dosage: 25 MG, UNK
  4. METOPROLOL TARTRATE [Concomitant]
     Dosage: 25 MG, UNK
     Route: 048

REACTIONS (3)
  - BLOOD PRESSURE INCREASED [None]
  - FATIGUE [None]
  - HEART RATE DECREASED [None]
